FAERS Safety Report 23408842 (Version 1)
Quarter: 2024Q1

REPORT INFORMATION
  Report Type: Spontaneous
  Country: US (occurrence: US)
  Receive Date: 20240117
  Receipt Date: 20240117
  Transmission Date: 20240410
  Serious: Yes (Other)
  Sender: FDA-Public Use
  Company Number: US-AMGEN-USASP2024005592

PATIENT
  Age: 21 Year
  Sex: Male

DRUGS (6)
  1. BLINATUMOMAB [Suspect]
     Active Substance: BLINATUMOMAB
     Indication: B-cell type acute leukaemia
     Dosage: 1 CYCLE
     Route: 065
  2. BLINATUMOMAB [Suspect]
     Active Substance: BLINATUMOMAB
     Dosage: UNK
     Route: 065
  3. CYCLOPHOSPHAMIDE [Concomitant]
     Active Substance: CYCLOPHOSPHAMIDE
     Indication: B-cell type acute leukaemia
     Dosage: 2 CYCLES
     Route: 065
  4. CLOFARABINE [Concomitant]
     Active Substance: CLOFARABINE
     Indication: B-cell type acute leukaemia
     Dosage: 2 CYCLES
     Route: 065
  5. ETOPOSIDE [Concomitant]
     Active Substance: ETOPOSIDE
     Indication: B-cell type acute leukaemia
     Dosage: 2 CYCLES
     Route: 065
  6. NILOTINIB [Concomitant]
     Active Substance: NILOTINIB
     Indication: B-cell type acute leukaemia
     Dosage: UNK
     Route: 065

REACTIONS (4)
  - Pulmonary toxicity [Unknown]
  - Pneumonia fungal [Unknown]
  - Therapy non-responder [Unknown]
  - Gastrointestinal toxicity [Unknown]
